FAERS Safety Report 25987772 (Version 2)
Quarter: 2025Q4

REPORT INFORMATION
  Report Type: Report from Study
  Country: CN (occurrence: CN)
  Receive Date: 20251103
  Receipt Date: 20251113
  Transmission Date: 20260118
  Serious: Yes (Death, Hospitalization)
  Sender: ROCHE
  Company Number: CN-ROCHE-10000408300

PATIENT
  Age: 60 Year
  Sex: Female

DRUGS (2)
  1. ENSPRYNG [Suspect]
     Active Substance: SATRALIZUMAB-MWGE
     Indication: Neuromyelitis optica spectrum disorder
     Dosage: ON 06-OCT-2025, 4TH DOSE SHOULD BE INJECTED
     Route: 058
     Dates: start: 20250811
  2. ENSPRYNG [Suspect]
     Active Substance: SATRALIZUMAB-MWGE
     Dosage: ON 06-OCT-2025, 4TH DOSE SHOULD BE INJECTED
     Route: 058
     Dates: start: 20250908

REACTIONS (3)
  - Coma [Fatal]
  - Pneumonia [Fatal]
  - Interleukin level increased [Unknown]

NARRATIVE: CASE EVENT DATE: 20251001
